FAERS Safety Report 9720736 (Version 2)
Quarter: 2013Q4

REPORT INFORMATION
  Report Type: Spontaneous
  Country: DE (occurrence: DE)
  Receive Date: 20131129
  Receipt Date: 20131216
  Transmission Date: 20140711
  Serious: Yes (Death, Hospitalization, Other)
  Sender: FDA-Public Use
  Company Number: PHHY2013DE137309

PATIENT
  Sex: 0

DRUGS (1)
  1. EXJADE [Suspect]
     Indication: MYELODYSPLASTIC SYNDROME
     Dosage: UNK UKN, UNK
     Route: 048
     Dates: end: 20130123

REACTIONS (7)
  - Chronic obstructive pulmonary disease [Fatal]
  - Infection [Fatal]
  - Acute myeloid leukaemia [Unknown]
  - Myelodysplastic syndrome [Unknown]
  - Disease progression [Unknown]
  - Blast cell count increased [Unknown]
  - General physical health deterioration [Unknown]
